FAERS Safety Report 7194367-1 (Version None)
Quarter: 2010Q4

REPORT INFORMATION
  Report Type: 
  Country: None (occurrence: None)
  Receive Date: 20101124
  Receipt Date: 20100830
  Transmission Date: 20110411
  Serious: No
  Sender: FDA-Public Use
  Company Number: 016248

PATIENT
  Age: 44 Year
  Sex: Female

DRUGS (1)
  1. LACOSAMIDE [Suspect]
     Indication: CONVULSION
     Dosage: (100 MG, BID TWICE DAILY)
     Dates: start: 20100701

REACTIONS (2)
  - PAROSMIA [None]
  - PRURITUS [None]
